FAERS Safety Report 16264702 (Version 1)
Quarter: 2019Q2

REPORT INFORMATION
  Report Type: Report from Study
  Country: US (occurrence: US)
  Receive Date: 20190502
  Receipt Date: 20190502
  Transmission Date: 20190711
  Serious: Yes (Other)
  Sender: FDA-Public Use
  Company Number: US-MYLANLABS-2019M1042274

PATIENT
  Age: 40 Year
  Sex: Female

DRUGS (13)
  1. FOLINIC ACID [Suspect]
     Active Substance: LEUCOVORIN
     Dosage: REDUCED DOSE, DURING THE FIRST ZFOLFIRI THERAPY (10 CYCLES)
     Route: 065
  2. ZALTRAP [Suspect]
     Active Substance: ZIV-AFLIBERCEPT
     Indication: ADENOCARCINOMA OF COLON
     Dosage: FIRST CYCLE AND LAST CYCLES DURING THE FIRST (18 CYCLES) AND LAST (10 CYCLES) ZFOLFIRI THERAPIES
     Route: 065
  3. ZALTRAP [Suspect]
     Active Substance: ZIV-AFLIBERCEPT
     Dosage: REDUCED DOSE, DURING THE FIRST ZFOLFIRI THERAPY
     Route: 065
  4. CAPECITABINE. [Concomitant]
     Active Substance: CAPECITABINE
     Indication: ADENOCARCINOMA OF COLON
     Route: 065
  5. IRINOTECAN [Suspect]
     Active Substance: IRINOTECAN
     Indication: ADENOCARCINOMA OF COLON
     Dosage: CYCLE 1 DURING THE FIRST ZFOLFIRI THERAPY (18 CYCLES)
     Route: 065
  6. IRINOTECAN [Suspect]
     Active Substance: IRINOTECAN
     Dosage: LAST CYCLE DURING THE FIRST ZFOLFIRI THERAPY
     Route: 065
  7. IRINOTECAN [Suspect]
     Active Substance: IRINOTECAN
     Dosage: CYCLE 1 DURING THE SECOND ZFOLFIRI THERAPY (10 CYCLES)
     Route: 065
  8. FOLINIC ACID [Suspect]
     Active Substance: LEUCOVORIN
     Indication: ADENOCARCINOMA OF COLON
     Dosage: DURING THE FIRST ZFOLFIRI THERAPY (18 CYCLES)
     Route: 065
  9. FLUOROURACIL. [Suspect]
     Active Substance: FLUOROURACIL
     Dosage: REDUCED DOSE DURING THE FIRST ZFOLFIRI THERAPY
     Route: 065
  10. IRINOTECAN [Suspect]
     Active Substance: IRINOTECAN
     Dosage: REDUCED DOSE, DURING THE FIRST ZFOLFIRI THERAPY
     Route: 065
  11. FLUOROURACIL. [Suspect]
     Active Substance: FLUOROURACIL
     Indication: ADENOCARCINOMA OF COLON
     Dosage: FIRST CYCLE DURING THE FIRST ZFOLFIRI THERAPY (18 CYCLES)
     Route: 065
  12. FLUOROURACIL. [Suspect]
     Active Substance: FLUOROURACIL
     Dosage: LAST CYCLE DURING THE FIRST AND SECOND ZFOLFIRI THERAPY (10 CYCLES)
     Route: 065
  13. BEVACIZUMAB. [Concomitant]
     Active Substance: BEVACIZUMAB
     Indication: ADENOCARCINOMA OF COLON
     Route: 065

REACTIONS (4)
  - Nausea [Unknown]
  - Ileus [Unknown]
  - Fistula [Unknown]
  - Vomiting [Unknown]
